FAERS Safety Report 5017046-5 (Version None)
Quarter: 2006Q2

REPORT INFORMATION
  Report Type: 
  Country: None (occurrence: None)
  Receive Date: 20060414
  Receipt Date: 20060227
  Transmission Date: 20061013
  Serious: Yes (Other)
  Sender: FDA-Public Use
  Company Number: 2005117305

PATIENT
  Age: 84 Year
  Sex: Female

DRUGS (4)
  1. MACUGEN [Suspect]
     Indication: MACULAR DEGENERATION
     Dosage: 0.3 MG (0.3 MG, 1 IN 6 WK), INTRAVITREOUS
     Dates: start: 20050419, end: 20050712
  2. GATIFLOXACIN [Concomitant]
  3. SYNTHROID [Concomitant]
  4. ASPIRIN [Concomitant]

REACTIONS (1)
  - ENDOPHTHALMITIS [None]
